FAERS Safety Report 8239797-1 (Version None)
Quarter: 2012Q1

REPORT INFORMATION
  Report Type: 
  Country: None (occurrence: None)
  Receive Date: 20120328
  Receipt Date: 20120320
  Transmission Date: 20120608
  Serious: Yes (Other)
  Sender: FDA-Public Use
  Company Number: JP-ASTELLAS-2012JP002586

PATIENT
  Age: 6 Year
  Sex: Male

DRUGS (5)
  1. PROGRAF [Suspect]
     Indication: PROPHYLAXIS AGAINST GRAFT VERSUS HOST DISEASE
     Dosage: UNK
     Route: 041
  2. FLUDARABINE PHOSPHATE [Concomitant]
     Dosage: 25 MG/M2, UNKNOWN/D
     Route: 042
  3. MELPHALAN HYDROCHLORIDE [Concomitant]
     Dosage: 70 MG/M2, UNKNOWN/D
     Route: 042
  4. METHOTREXATE [Concomitant]
     Indication: PROPHYLAXIS AGAINST GRAFT VERSUS HOST DISEASE
     Dosage: 10 MG/M2, UNKNOWN/D
     Route: 065
  5. METHOTREXATE [Concomitant]
     Dosage: 7 MG/M2, UNKNOWN/D
     Route: 065

REACTIONS (3)
  - ACUTE GRAFT VERSUS HOST DISEASE [None]
  - CYTOMEGALOVIRUS VIRAEMIA [None]
  - DRUG INEFFECTIVE [None]
